FAERS Safety Report 10222678 (Version 2)
Quarter: 2015Q3

REPORT INFORMATION
  Report Type: Spontaneous
  Country: US (occurrence: US)
  Receive Date: 20140606
  Receipt Date: 20150727
  Transmission Date: 20151125
  Serious: Yes (Other)
  Sender: FDA-Public Use
  Company Number: US-GILEAD-2013-0081674

PATIENT
  Sex: Male

DRUGS (3)
  1. TRUVADA [Suspect]
     Active Substance: EMTRICITABINE\TENOFOVIR DISOPROXIL FUMARATE
     Indication: HIV INFECTION
     Dosage: UNK
     Dates: start: 2012
  2. VIRAMUNE [Concomitant]
     Active Substance: NEVIRAPINE
     Indication: HIV INFECTION
     Dosage: UNK
     Dates: start: 2012
  3. ATRIPLA [Concomitant]
     Active Substance: EFAVIRENZ\EMTRICITABINE\TENOFOVIR DISOPROXIL FUMARATE
     Dosage: UNK
     Dates: end: 2012

REACTIONS (12)
  - Weight increased [Unknown]
  - Crying [Unknown]
  - Sinusitis [Unknown]
  - Migraine [Unknown]
  - Asthenia [Unknown]
  - Depression [Unknown]
  - Feeling abnormal [Unknown]
  - Constipation [Unknown]
  - Panic attack [Unknown]
  - Nausea [Unknown]
  - Unevaluable event [Unknown]
  - Dyskinesia [Unknown]
